FAERS Safety Report 10628373 (Version 1)
Quarter: 2014Q4

REPORT INFORMATION
  Report Type: Spontaneous
  Country: US (occurrence: US)
  Receive Date: 20141205
  Receipt Date: 20141205
  Transmission Date: 20150529
  Serious: No
  Sender: FDA-Public Use
  Company Number: US-BRISTOL-MYERS SQUIBB COMPANY-21308986

PATIENT
  Age: 30 Year
  Sex: Male
  Weight: 77.1 kg

DRUGS (5)
  1. ABILIFY [Suspect]
     Active Substance: ARIPIPRAZOLE
     Indication: DEPRESSION
     Dosage: PT TOOK 5 MG FOR 4 WEEKS. LATER DOSE INCRSD TO 10 MG
  2. LITHIUM [Concomitant]
     Active Substance: LITHIUM CARBONATE
  3. VITAMIN D [Concomitant]
     Active Substance: CHOLECALCIFEROL
  4. EFFEXOR XR [Concomitant]
     Active Substance: VENLAFAXINE HYDROCHLORIDE
  5. WELLBUTRIN [Concomitant]
     Active Substance: BUPROPION HYDROCHLORIDE

REACTIONS (1)
  - Weight increased [Unknown]
